FAERS Safety Report 24567440 (Version 4)
Quarter: 2024Q4

REPORT INFORMATION
  Report Type: Spontaneous
  Country: JP (occurrence: JP)
  Receive Date: 20241030
  Receipt Date: 20241220
  Transmission Date: 20250115
  Serious: Yes (Life-Threatening, Other)
  Sender: TAKEDA
  Company Number: JP-TAKEDA-2024TUS109081

PATIENT
  Age: 52 Year
  Sex: Female
  Weight: 53 kg

DRUGS (10)
  1. LIALDA [Suspect]
     Active Substance: MESALAMINE
     Indication: Colitis ulcerative
     Dosage: 4800 MILLIGRAM, QD
     Dates: start: 201909
  2. OMVOH [Suspect]
     Active Substance: MIRIKIZUMAB-MRKZ
     Indication: Colitis ulcerative
     Dosage: UNK
  3. OMVOH [Suspect]
     Active Substance: MIRIKIZUMAB-MRKZ
     Dosage: 300 MILLIGRAM, QD
     Dates: start: 20240919, end: 20240919
  4. OMVOH [Suspect]
     Active Substance: MIRIKIZUMAB-MRKZ
     Dosage: 300 MILLIGRAM, QD
     Dates: start: 20241007, end: 20241007
  5. OMVOH [Suspect]
     Active Substance: MIRIKIZUMAB-MRKZ
     Dosage: UNK
  6. MIYA-BM [Concomitant]
     Active Substance: CLOSTRIDIUM BUTYRICUM SPORES STRAIN M-55
     Indication: Colitis ulcerative
     Dosage: 1 DOSAGE FORM, Q8HR
  7. VONOPRAZAN FUMARATE [Concomitant]
     Active Substance: VONOPRAZAN FUMARATE
     Indication: Colitis ulcerative
     Dosage: 20 MILLIGRAM, QD
  8. CELECOXIB [Concomitant]
     Active Substance: CELECOXIB
     Indication: Arthralgia
     Dosage: 100 MILLIGRAM, Q12H
     Dates: start: 20240915
  9. HUMIRA [Concomitant]
     Active Substance: ADALIMUMAB
     Dosage: 40 MILLIGRAM, QD
     Dates: start: 20231024, end: 20240918
  10. ENTYVIO [Concomitant]
     Active Substance: VEDOLIZUMAB
     Dosage: 300 MILLIGRAM, QD
     Dates: start: 20230330, end: 20231023

REACTIONS (1)
  - Anaphylactic shock [Recovered/Resolved]

NARRATIVE: CASE EVENT DATE: 20241017
